FAERS Safety Report 9705932 (Version 3)
Quarter: 2013Q4

REPORT INFORMATION
  Report Type: Report from Study
  Country: JP (occurrence: JP)
  Receive Date: 20131122
  Receipt Date: 20131129
  Transmission Date: 20140711
  Serious: Yes (Other)
  Sender: FDA-Public Use
  Company Number: JP-009507513-1305JPN006076

PATIENT
  Age: 31 Year
  Sex: Female
  Weight: 45 kg

DRUGS (7)
  1. GANIRELIX ACETATE [Suspect]
     Indication: PREVENTION OF PREMATURE OVULATION
     Dosage: 0.25 MG, QD
     Route: 058
     Dates: start: 20100524, end: 20100526
  2. FOLLISTIM INJECTION 50 [Suspect]
     Indication: IN VITRO FERTILISATION
     Dosage: 75 (UNDER 1000 UNIT), QD
     Route: 058
     Dates: start: 20100517, end: 20100521
  3. FOLLISTIM INJECTION 50 [Suspect]
     Dosage: 100 (UNDER 1000 UNIT), QD
     Route: 058
     Dates: start: 20100522, end: 20100527
  4. PREGNYL 5000IU [Suspect]
     Indication: OVULATION INDUCTION
     Dosage: 10 THOUSAND-MILLION UNIT, ONCE
     Route: 030
     Dates: start: 20100527, end: 20100527
  5. ESTRENA [Concomitant]
     Indication: IN VITRO FERTILISATION
     Dosage: 1 DF, QD
     Route: 062
     Dates: start: 20100603, end: 20100718
  6. PROGE DEPOT [Concomitant]
     Indication: IN VITRO FERTILISATION
     Dosage: 125 MG, QD
     Route: 030
     Dates: start: 20100622, end: 20100706
  7. HCG MOCHIDA [Concomitant]
     Indication: IN VITRO FERTILISATION
     Dosage: 50 (UNDER 1000 UNIT), QD
     Route: 030
     Dates: start: 20100524, end: 20100527

REACTIONS (1)
  - Abortion [Recovered/Resolved]
